FAERS Safety Report 8950869 (Version 1)
Quarter: 2012Q4

REPORT INFORMATION
  Report Type: Spontaneous
  Country: US (occurrence: None)
  Receive Date: 20121130
  Receipt Date: 20121130
  Transmission Date: 20130627
  Serious: Yes (Hospitalization)
  Sender: FDA-Public Use
  Company Number: None

PATIENT
  Age: 87 Year
  Sex: Female
  Weight: 34.47 kg

DRUGS (11)
  1. DONEPEZIL [Suspect]
     Indication: DEMENTIA
     Dosage: unknown-prior to admit
  2. WARFARIN [Concomitant]
  3. HCTZ/LISINOPRIL [Concomitant]
  4. FLUOXETINE [Concomitant]
  5. ACETAMINOPHEN [Concomitant]
  6. ARIPIPRAZOLE [Concomitant]
  7. ASPIRIN [Concomitant]
  8. ATORVASTATIN [Concomitant]
  9. CHOLECALCIFEROL [Concomitant]
  10. LIDOCAINE PATCH [Concomitant]
  11. MEMANTINE [Concomitant]

REACTIONS (3)
  - Syncope [None]
  - Fall [None]
  - Bradycardia [None]
